FAERS Safety Report 18085566 (Version 1)
Quarter: 2020Q3

REPORT INFORMATION
  Report Type: Spontaneous
  Country: CO (occurrence: CO)
  Receive Date: 20200729
  Receipt Date: 20200729
  Transmission Date: 20201103
  Serious: Yes (Other)
  Sender: FDA-Public Use
  Company Number: CO-AMGEN-COLSP2020106891

PATIENT
  Age: 64 Year
  Sex: Female
  Weight: 51 kg

DRUGS (3)
  1. CISPLATIN. [Concomitant]
     Active Substance: CISPLATIN
     Dosage: UNK
     Dates: start: 20200703
  2. MVASI [Suspect]
     Active Substance: BEVACIZUMAB-AWWB
     Indication: EPITHELIOID MESOTHELIOMA
     Dosage: 765 MILLIGRAM DAY 1 Y 22
     Route: 065
     Dates: start: 20191216
  3. PEMETREXED. [Concomitant]
     Active Substance: PEMETREXED
     Dosage: UNK
     Dates: start: 20200703

REACTIONS (1)
  - Epithelioid mesothelioma [Not Recovered/Not Resolved]

NARRATIVE: CASE EVENT DATE: 20200619
